FAERS Safety Report 12563395 (Version 1)
Quarter: 2016Q3

REPORT INFORMATION
  Report Type: Spontaneous
  Country: FR (occurrence: FR)
  Receive Date: 20160715
  Receipt Date: 20160715
  Transmission Date: 20161109
  Serious: Yes (Other)
  Sender: FDA-Public Use
  Company Number: ALCN2016FR004699

PATIENT
  Age: 11 Month
  Sex: Male
  Weight: 10.78 kg

DRUGS (3)
  1. ZYMAD [Concomitant]
     Active Substance: CHOLECALCIFEROL
     Indication: PROPHYLAXIS
     Dosage: 3 GTT, QD
     Route: 065
  2. ATROPINE SULFATE. [Suspect]
     Active Substance: ATROPINE SULFATE
     Indication: OPHTHALMOLOGICAL EXAMINATION
     Dosage: 1 GTT, BID
     Route: 047
     Dates: start: 20160702, end: 20160709
  3. ATROPINE SULFATE. [Suspect]
     Active Substance: ATROPINE SULFATE
     Indication: MYDRIASIS

REACTIONS (1)
  - Fever neonatal [Recovered/Resolved]
